FAERS Safety Report 25887499 (Version 1)
Quarter: 2025Q4

REPORT INFORMATION
  Report Type: Spontaneous
  Country: GB (occurrence: GB)
  Receive Date: 20251007
  Receipt Date: 20251007
  Transmission Date: 20260117
  Serious: Yes (Other)
  Sender: ACCORD
  Company Number: None

PATIENT
  Age: 64 Year
  Sex: Male

DRUGS (1)
  1. ATORVASTATIN [Suspect]
     Active Substance: ATORVASTATIN
     Indication: Product used for unknown indication
     Dosage: 10MG TO BE TAKEN ONCE A DAY
     Dates: start: 20240402, end: 20250911

REACTIONS (2)
  - Fatigue [Recovered/Resolved]
  - Loss of libido [Recovered/Resolved]
